FAERS Safety Report 15605059 (Version 1)
Quarter: 2018Q4

REPORT INFORMATION
  Report Type: Spontaneous
  Country: CZ (occurrence: CZ)
  Receive Date: 20181112
  Receipt Date: 20181112
  Transmission Date: 20190205
  Serious: Yes (Death, Other)
  Sender: FDA-Public Use
  Company Number: CZ-ACCORD-091111

PATIENT
  Age: 4 Year
  Sex: Female

DRUGS (8)
  1. DOXORUBICIN [Suspect]
     Active Substance: DOXORUBICIN
     Indication: MEDULLOBLASTOMA RECURRENT
     Dosage: 70 MG/M2
     Route: 065
  2. CALCIUM LEUCOVORIN [Suspect]
     Active Substance: LEUCOVORIN CALCIUM
     Indication: PRODUCT USED FOR UNKNOWN INDICATION
  3. BEVACIZUMAB. [Suspect]
     Active Substance: BEVACIZUMAB
     Indication: MEDULLOBLASTOMA RECURRENT
     Dosage: 10 MG/KG, 1X/2WKS
     Route: 065
  4. IRINOTECAN HYDROCHLORIDE ENCAPSULATED IN NANOLIPOSOMAL PARTICLES [Suspect]
     Active Substance: IRINOTECAN HYDROCHLORIDE
     Indication: MEDULLOBLASTOMA RECURRENT
     Dosage: 125 MG/M2, 1X/2WKS
     Route: 065
  5. METHOTREXATE. [Suspect]
     Active Substance: METHOTREXATE
     Indication: MEDULLOBLASTOMA RECURRENT
  6. CYTARABINE/CYTARABINE HYDROCHLORIDE/CYTARABINE OCFOSFATE [Suspect]
     Active Substance: CYTARABINE
     Indication: MEDULLOBLASTOMA RECURRENT
     Dosage: 2 MG/KG, 1X A MONTH
     Route: 037
  7. ONIVYDE [Suspect]
     Active Substance: IRINOTECAN HYDROCHLORIDE
     Indication: OFF LABEL USE
     Dosage: 1.5 MG/M2, 1X/2WKS, ENCAPSULATED IN NANOLIPOSOMAL PARTICLES
     Route: 065
  8. VINCRISTINE [Suspect]
     Active Substance: VINCRISTINE
     Indication: MEDULLOBLASTOMA RECURRENT
     Dosage: 1.5 MG/M2, UNK
     Route: 065

REACTIONS (4)
  - Pancytopenia [Unknown]
  - Overdose [Unknown]
  - Infection [Unknown]
  - Medulloblastoma recurrent [Fatal]
